FAERS Safety Report 4463047-5 (Version None)
Quarter: 2004Q3

REPORT INFORMATION
  Report Type: 
  Country: None (occurrence: None)
  Receive Date: 20040928
  Receipt Date: 20040913
  Transmission Date: 20050211
  Serious: Yes (Other)
  Sender: FDA-Public Use
  Company Number: 20040049USST

PATIENT
  Age: 33 Year
  Sex: Male

DRUGS (2)
  1. LEVOCARNITINE [Suspect]
     Dosage: 1000 MG/DAY
  2. ACENOCUMAROL [Concomitant]

REACTIONS (1)
  - INTERNATIONAL NORMALISED RATIO INCREASED [None]
